FAERS Safety Report 6690415-3 (Version None)
Quarter: 2010Q2

REPORT INFORMATION
  Report Type: 
  Country: None (occurrence: None)
  Receive Date: 20100421
  Receipt Date: 20091023
  Transmission Date: 20101027
  Serious: No
  Sender: FDA-Public Use
  Company Number: US-ASTRAZENECA-2009SE14904

PATIENT
  Age: 1015 Month
  Sex: Male

DRUGS (2)
  1. CASODEX [Suspect]
     Route: 048
     Dates: start: 20090714, end: 20090701
  2. CASODEX [Suspect]
     Route: 048
     Dates: start: 20090801, end: 20090801

REACTIONS (5)
  - BRONCHITIS [None]
  - COUGH [None]
  - INSOMNIA [None]
  - OROPHARYNGEAL PAIN [None]
  - RED BLOOD CELL SEDIMENTATION RATE DECREASED [None]
